FAERS Safety Report 13711835 (Version 1)
Quarter: 2017Q3

REPORT INFORMATION
  Report Type: Spontaneous
  Country: US (occurrence: US)
  Receive Date: 20170703
  Receipt Date: 20170703
  Transmission Date: 20171127
  Serious: No
  Sender: FDA-Public Use
  Company Number: US-JNJFOC-20161209928

PATIENT

DRUGS (1)
  1. TERAZOL [Suspect]
     Active Substance: TERCONAZOLE
     Indication: CANDIDA INFECTION
     Route: 065

REACTIONS (1)
  - Drug ineffective [Unknown]
